FAERS Safety Report 6279320-4 (Version None)
Quarter: 2009Q3

REPORT INFORMATION
  Report Type: 
  Country: None (occurrence: None)
  Receive Date: 20090723
  Receipt Date: 20081024
  Transmission Date: 20100115
  Serious: Yes (Life-Threatening, Other)
  Sender: FDA-Public Use
  Company Number: US-AMGEN-KDL300118

PATIENT
  Sex: Female
  Weight: 61.7 kg

DRUGS (4)
  1. PROCRIT [Suspect]
     Indication: ANAEMIA OF MALIGNANT DISEASE
     Route: 058
     Dates: start: 20080626, end: 20080717
  2. UNSPECIFIED MEDICATION [Suspect]
     Route: 042
     Dates: start: 20080424
  3. PACLITAXEL [Suspect]
     Route: 042
     Dates: start: 20080424
  4. CARBOPLATIN [Suspect]
     Route: 042
     Dates: start: 20080424

REACTIONS (1)
  - DEEP VEIN THROMBOSIS [None]
